FAERS Safety Report 4740313-7 (Version None)
Quarter: 2005Q3

REPORT INFORMATION
  Report Type: 
  Country: None (occurrence: None)
  Receive Date: 20050809
  Receipt Date: 20050809
  Transmission Date: 20060218
  Serious: Yes (Other)
  Sender: FDA-Public Use
  Company Number: None

PATIENT
  Age: 49 Year
  Sex: Male
  Weight: 63.05 kg

DRUGS (6)
  1. ERBITUX [Suspect]
     Indication: TONSIL CANCER
     Dosage: 250 MG/M2 ONCE A WEEK INTRAVENOUS
     Route: 042
     Dates: start: 20050628, end: 20050726
  2. TAXOL [Concomitant]
  3. CARBOPLATIN [Concomitant]
  4. ERBITUX [Concomitant]
  5. DIPHENHYDRAMINE HCL [Concomitant]
  6. ALBUTEROL [Concomitant]

REACTIONS (2)
  - RASH ERYTHEMATOUS [None]
  - SCAB [None]
